FAERS Safety Report 15643921 (Version 1)
Quarter: 2018Q4

REPORT INFORMATION
  Report Type: Spontaneous
  Country: RS (occurrence: RS)
  Receive Date: 20181121
  Receipt Date: 20181121
  Transmission Date: 20190205
  Serious: Yes (Hospitalization, Other)
  Sender: FDA-Public Use
  Company Number: RS-SA-2018SA314148

PATIENT
  Age: 74 Year
  Sex: Female

DRUGS (14)
  1. TOUJEO [Suspect]
     Active Substance: INSULIN GLARGINE
     Indication: TYPE 2 DIABETES MELLITUS
     Dosage: 44 IU, UNK
     Route: 065
  2. TOUJEO [Suspect]
     Active Substance: INSULIN GLARGINE
     Dosage: 68 UNK
     Route: 065
  3. NOVORAPID [Suspect]
     Active Substance: INSULIN ASPART
     Dosage: 12+7+5IU
     Route: 058
  4. ATACOR [Concomitant]
     Dosage: 20 MG, QD
     Route: 048
  5. NOVORAPID [Suspect]
     Active Substance: INSULIN ASPART
     Dosage: 10+4+6 IU
     Route: 058
  6. GLUFORMIN [Concomitant]
     Active Substance: METFORMIN HYDROCHLORIDE
     Dosage: 500 MG, BID
     Route: 065
  7. PRILENAP [ENALAPRIL] [Concomitant]
     Dosage: 20 MG, BID
     Route: 048
  8. NOVORAPID [Suspect]
     Active Substance: INSULIN ASPART
     Indication: TYPE 2 DIABETES MELLITUS
     Dosage: 26+12+9 IU
     Route: 058
  9. CARDIOPIRIN [Concomitant]
     Active Substance: ASPIRIN
     Dosage: UNK UNK, QD
     Route: 048
  10. TRENTAL [Concomitant]
     Active Substance: PENTOXIFYLLINE
     Dosage: 400 MG, TID
     Route: 048
  11. NEVOTENS [Concomitant]
     Dosage: UNK UNK, QD
     Route: 048
  12. NORVASC [Concomitant]
     Active Substance: AMLODIPINE BESYLATE
     Dosage: 10 MG, HS
     Route: 048
  13. LEVEMIR [Concomitant]
     Active Substance: INSULIN DETEMIR
     Dosage: 38 IU, QD
     Route: 065
  14. TIVORAL [Concomitant]
     Active Substance: LEVOTHYROXINE SODIUM
     Dosage: UNK UNK, QD
     Route: 048

REACTIONS (2)
  - Hypoglycaemia [Recovering/Resolving]
  - Gangrene [Unknown]
